FAERS Safety Report 4377256-7 (Version None)
Quarter: 2004Q2

REPORT INFORMATION
  Report Type: 
  Country: None (occurrence: None)
  Receive Date: 20040609
  Receipt Date: 20040310
  Transmission Date: 20050107
  Serious: No
  Sender: FDA-Public Use
  Company Number: 2004203434US

PATIENT
  Age: 79 Year
  Sex: Female
  Weight: 61.2 kg

DRUGS (4)
  1. BEXTRA [Suspect]
     Indication: OSTEOARTHRITIS
     Dosage: 10 MG, QD, UNK
     Dates: start: 20040308, end: 20040310
  2. TYLENOL [Concomitant]
  3. ASPIRIN [Concomitant]
  4. TENORMIN [Concomitant]

REACTIONS (3)
  - ANXIETY [None]
  - HYPERVENTILATION [None]
  - NERVOUSNESS [None]
